FAERS Safety Report 11757326 (Version 1)
Quarter: 2015Q4

REPORT INFORMATION
  Report Type: Spontaneous
  Country: JP (occurrence: JP)
  Receive Date: 20151120
  Receipt Date: 20151120
  Transmission Date: 20160304
  Serious: Yes (Death)
  Sender: FDA-Public Use
  Company Number: PHJP2015JP020478

PATIENT

DRUGS (1)
  1. EXELON PATCH [Suspect]
     Active Substance: RIVASTIGMINE
     Indication: DEMENTIA ALZHEIMER^S TYPE
     Dosage: 1.9 MG/24H (PATCH2.5, 4.5 MG RIVASTIGMINE BASE)
     Route: 062

REACTIONS (3)
  - Death [Fatal]
  - Cognitive disorder [Unknown]
  - Liver function test abnormal [Recovered/Resolved]
